FAERS Safety Report 9904620 (Version 2)
Quarter: 2014Q1

REPORT INFORMATION
  Report Type: Spontaneous
  Country: CR (occurrence: CR)
  Receive Date: 20140218
  Receipt Date: 20140313
  Transmission Date: 20141002
  Serious: Yes (Hospitalization, Other)
  Sender: FDA-Public Use
  Company Number: CR-BAYER-2014-021382

PATIENT
  Age: 23 Year
  Sex: Female

DRUGS (1)
  1. MIRENA [Suspect]
     Indication: CONTRACEPTION
     Dosage: 20 MCG/24HR, CONT
     Route: 015
     Dates: start: 201206, end: 20140103

REACTIONS (6)
  - Haemorrhagic cyst [Recovered/Resolved]
  - Genital haemorrhage [Recovered/Resolved]
  - Ovarian cyst [Recovered/Resolved]
  - Candida infection [Recovered/Resolved]
  - Pelvic pain [Recovered/Resolved]
  - Amenorrhoea [Recovered/Resolved]
